FAERS Safety Report 7642751-1 (Version None)
Quarter: 2011Q3

REPORT INFORMATION
  Report Type: 
  Country: None (occurrence: None)
  Receive Date: 20110728
  Receipt Date: 20110719
  Transmission Date: 20111222
  Serious: Yes (Other)
  Sender: FDA-Public Use
  Company Number: PHHY2011US67193

PATIENT

DRUGS (1)
  1. HEPARIN [Suspect]
     Dosage: UNK

REACTIONS (6)
  - SOFT TISSUE NECROSIS [None]
  - COMPARTMENT SYNDROME [None]
  - DEEP VEIN THROMBOSIS [None]
  - RENAL FAILURE ACUTE [None]
  - HEPARIN-INDUCED THROMBOCYTOPENIA [None]
  - WHITE CLOT SYNDROME [None]
